FAERS Safety Report 9404605 (Version 1)
Quarter: 2013Q3

REPORT INFORMATION
  Report Type: Spontaneous
  Country: US (occurrence: US)
  Receive Date: 20130717
  Receipt Date: 20130717
  Transmission Date: 20140515
  Serious: No
  Sender: FDA-Public Use
  Company Number: US-PFIZER INC-2013206646

PATIENT
  Age: 64 Year
  Sex: Male
  Weight: 98.87 kg

DRUGS (8)
  1. INLYTA [Suspect]
     Dosage: 5 MG, 2X/DAY
     Route: 048
  2. ZEMPLAR [Concomitant]
     Dosage: 1 UG, UNK
  3. TERAZOSIN [Concomitant]
     Dosage: 1 MG, UNK
  4. LOVAZA [Concomitant]
     Dosage: 1 G, UNK
  5. PRILOSEC [Concomitant]
     Dosage: 40 MG, UNK
  6. LEVOTHYROXIN [Concomitant]
     Dosage: 137 UG, UNK
  7. FELODIPINE [Concomitant]
     Dosage: 10 MG, UNK (10MG ER)
  8. VITAMIN D3 [Concomitant]
     Dosage: 400 UNITS, UNK

REACTIONS (2)
  - Visual impairment [Unknown]
  - Cataract [Unknown]
